FAERS Safety Report 7297850-3 (Version None)
Quarter: 2011Q1

REPORT INFORMATION
  Report Type: 
  Country: None (occurrence: None)
  Receive Date: 20110217
  Receipt Date: 20101201
  Transmission Date: 20110831
  Serious: No
  Sender: FDA-Public Use
  Company Number: US-KINGPHARMUSA00001-K201001463

PATIENT
  Age: 61 Year
  Sex: Female
  Weight: 68.027 kg

DRUGS (6)
  1. OXYCODONE [Concomitant]
     Indication: BREAKTHROUGH PAIN
     Dosage: UNK
     Route: 048
  2. SULINDAC [Concomitant]
     Indication: ARTHRITIS
     Dosage: UNK
     Route: 048
  3. SKELAXIN [Concomitant]
     Indication: MUSCLE DISORDER
     Dosage: UNK
     Route: 048
  4. FLECTOR [Suspect]
     Indication: MYALGIA
     Dosage: 1/2 PATCH, Q12H
     Route: 061
     Dates: start: 20101001
  5. NIFEDIPINE [Concomitant]
     Indication: RAYNAUD'S PHENOMENON
     Dosage: UNK
     Route: 048
  6. CYMBALTA [Concomitant]
     Dosage: UNK
     Route: 048

REACTIONS (1)
  - APPLICATION SITE PARAESTHESIA [None]
